FAERS Safety Report 5467696-7 (Version None)
Quarter: 2007Q3

REPORT INFORMATION
  Report Type: 
  Country: None (occurrence: None)
  Receive Date: 20070925
  Receipt Date: 20070917
  Transmission Date: 20080115
  Serious: Yes (Death, Other)
  Sender: FDA-Public Use
  Company Number: US-ELI_LILLY_AND_COMPANY-US200709003229

PATIENT
  Age: 60 Year
  Sex: Male

DRUGS (1)
  1. HUMULIN U [Suspect]
     Indication: DIABETES MELLITUS

REACTIONS (7)
  - BLOOD GLUCOSE DECREASED [None]
  - BLOOD GLUCOSE INCREASED [None]
  - CARDIAC FAILURE CONGESTIVE [None]
  - CEREBROVASCULAR ACCIDENT [None]
  - DIABETIC COMPLICATION [None]
  - HYPERTENSION [None]
  - RENAL FAILURE [None]
